FAERS Safety Report 8246543-4 (Version None)
Quarter: 2012Q1

REPORT INFORMATION
  Report Type: 
  Country: None (occurrence: None)
  Receive Date: 20120330
  Receipt Date: 20120326
  Transmission Date: 20120608
  Serious: Yes (Hospitalization)
  Sender: FDA-Public Use
  Company Number: FR-JNJFOC-20120313808

PATIENT
  Sex: Female

DRUGS (6)
  1. XARELTO [Suspect]
     Indication: HIP ARTHROPLASTY
     Route: 048
     Dates: start: 20120106, end: 20120124
  2. XARELTO [Suspect]
     Indication: THROMBOSIS PROPHYLAXIS
     Route: 048
     Dates: start: 20120106, end: 20120124
  3. ACETAMINOPHEN AND TRAMADOL HCL [Concomitant]
     Route: 048
     Dates: start: 20120125, end: 20120130
  4. LOVENOX [Concomitant]
  5. ACETAMINOPHEN [Concomitant]
     Route: 048
     Dates: start: 20120107, end: 20120124
  6. KETOPROFEN [Suspect]
     Indication: PAIN
     Route: 048
     Dates: start: 20120107, end: 20120124

REACTIONS (2)
  - HAEMATOMA [None]
  - RED BLOOD CELL COUNT DECREASED [None]
